FAERS Safety Report 10680936 (Version 2)
Quarter: 2015Q1

REPORT INFORMATION
  Report Type: Spontaneous
  Country: JP (occurrence: JP)
  Receive Date: 20141229
  Receipt Date: 20150305
  Transmission Date: 20150720
  Serious: Yes (Death)
  Sender: FDA-Public Use
  Company Number: JP-MALLINCKRODT-T201404587

PATIENT
  Age: 72 Year
  Sex: Female
  Weight: 56 kg

DRUGS (15)
  1. SEROQUEL [Concomitant]
     Active Substance: QUETIAPINE FUMARATE
     Dosage: 50 MG
     Route: 048
     Dates: end: 20140921
  2. ANAPEINE [Concomitant]
     Active Substance: ROPIVACAINE HYDROCHLORIDE
     Dosage: 106 MG
     Route: 008
     Dates: end: 20140925
  3. SEISHOKU [Concomitant]
     Active Substance: SODIUM CHLORIDE
     Dosage: 40 ML
     Route: 008
     Dates: end: 20140925
  4. CELECOX [Concomitant]
     Active Substance: CELECOXIB
     Dosage: 400 MG
     Route: 048
     Dates: end: 20140921
  5. PYRINAZIN [Concomitant]
     Active Substance: ACETAMINOPHEN
     Dosage: 3 G
     Route: 048
     Dates: end: 20140921
  6. MORPHINE HYDROCHLORIDE [Concomitant]
     Active Substance: MORPHINE HYDROCHLORIDE
     Dosage: 14 MG
     Route: 008
     Dates: end: 20140925
  7. METHADONE [Suspect]
     Active Substance: METHADONE HYDROCHLORIDE
     Indication: CANCER PAIN
     Dosage: 5 MG, (15 MG DAILY DOSE)
     Route: 048
     Dates: start: 20140819, end: 20140825
  8. NEXIUM [Concomitant]
     Active Substance: ESOMEPRAZOLE MAGNESIUM
     Dosage: 20 MG
     Route: 048
     Dates: end: 20140921
  9. ANAPEINE [Concomitant]
     Active Substance: ROPIVACAINE HYDROCHLORIDE
     Dosage: 5.9 MG, PRN
     Route: 008
     Dates: start: 20140818, end: 20140925
  10. BUSCOPAN [Concomitant]
     Active Substance: BUTYLSCOPOLAMINE BROMIDE
     Dosage: 80 MG
     Route: 051
     Dates: start: 20140923, end: 20140925
  11. OXYFAST [Concomitant]
     Active Substance: OXYCODONE
     Dosage: 120 MG
     Route: 051
     Dates: end: 20140922
  12. METHADONE [Suspect]
     Active Substance: METHADONE HYDROCHLORIDE
     Dosage: 5 MG, (20 MG DAILY DOSE)
     Route: 048
     Dates: start: 20140826, end: 20140906
  13. METHADONE [Suspect]
     Active Substance: METHADONE HYDROCHLORIDE
     Dosage: 5 MG, (30 MG DAILY DOSE)
     Route: 048
     Dates: start: 20140907, end: 20140920
  14. LYRICA [Concomitant]
     Active Substance: PREGABALIN
     Dosage: 175 MG
     Route: 048
     Dates: end: 20140921
  15. MORPHINE HYDROCHLORIDE [Concomitant]
     Active Substance: MORPHINE HYDROCHLORIDE
     Dosage: 0.8 MG, PRN
     Route: 008
     Dates: start: 20140818, end: 20140925

REACTIONS (1)
  - Breast cancer [Fatal]
